FAERS Safety Report 14552426 (Version 2)
Quarter: 2018Q1

REPORT INFORMATION
  Report Type: Spontaneous
  Country: US (occurrence: US)
  Receive Date: 20180220
  Receipt Date: 20180307
  Transmission Date: 20180509
  Serious: No
  Sender: FDA-Public Use
  Company Number: US-GLAXOSMITHKLINE-US2018026256

PATIENT
  Age: 67 Year
  Sex: Female

DRUGS (8)
  1. ASPIRIN. [Concomitant]
     Active Substance: ASPIRIN
  2. HYDROCHLOROTHIAZIDE. [Concomitant]
     Active Substance: HYDROCHLOROTHIAZIDE
  3. FLOVENT DISKUS [Suspect]
     Active Substance: FLUTICASONE PROPIONATE
     Indication: ASTHMA
     Dosage: 1 PUFF(S), 1D
     Route: 055
     Dates: start: 20180215
  4. PRAVASTATIN. [Concomitant]
     Active Substance: PRAVASTATIN
  5. TRAZODONE EYE DROPS [Concomitant]
  6. QVAR [Concomitant]
     Active Substance: BECLOMETHASONE DIPROPIONATE
  7. TRIMETHOPRIM. [Concomitant]
     Active Substance: TRIMETHOPRIM
  8. VITAMIN E [Concomitant]
     Active Substance: .ALPHA.-TOCOPHEROL

REACTIONS (6)
  - Feeling jittery [Not Recovered/Not Resolved]
  - Nervousness [Not Recovered/Not Resolved]
  - Tremor [Not Recovered/Not Resolved]
  - Feeling abnormal [Not Recovered/Not Resolved]
  - Sensory disturbance [Not Recovered/Not Resolved]
  - Asthenia [Not Recovered/Not Resolved]

NARRATIVE: CASE EVENT DATE: 20180215
